FAERS Safety Report 7528230-0 (Version None)
Quarter: 2011Q2

REPORT INFORMATION
  Report Type: 
  Country: None (occurrence: None)
  Receive Date: 20110607
  Receipt Date: 20100726
  Transmission Date: 20111010
  Serious: No
  Sender: FDA-Public Use
  Company Number: US-ASTRAZENECA-2010SE34850

PATIENT
  Age: 91 Year
  Sex: Female

DRUGS (8)
  1. DIGOXIN [Concomitant]
  2. ASPIRIN [Concomitant]
  3. PLAVIX [Suspect]
     Indication: CEREBROVASCULAR ACCIDENT
     Route: 048
     Dates: start: 20100626
  4. PRILOSEC [Suspect]
     Route: 048
  5. AMLODIPINE [Concomitant]
  6. COLACE [Concomitant]
  7. BESILATE [Concomitant]
  8. DILTIAZEM [Concomitant]

REACTIONS (3)
  - MOANING [None]
  - POOR QUALITY SLEEP [None]
  - RESTLESSNESS [None]
